FAERS Safety Report 16878344 (Version 8)
Quarter: 2020Q4

REPORT INFORMATION
  Report Type: Report from Study
  Country: JP (occurrence: JP)
  Receive Date: 20191002
  Receipt Date: 20201020
  Transmission Date: 20210113
  Serious: Yes (Other)
  Sender: FDA-Public Use
  Company Number: PHJP2019JP012734

PATIENT
  Age: 6 Year
  Sex: Female
  Weight: 27.8 kg

DRUGS (44)
  1. ILARIS [Suspect]
     Active Substance: CANAKINUMAB
     Dosage: 96 MG
     Route: 058
     Dates: start: 20191227
  2. ILARIS [Suspect]
     Active Substance: CANAKINUMAB
     Dosage: 99 MG, UNK
     Route: 058
     Dates: start: 20200319
  3. CICLOSPORIN [Concomitant]
     Active Substance: CYCLOSPORINE
     Dosage: 100 MG, UNK
     Route: 048
     Dates: start: 20190515, end: 20200806
  4. MEDROL [Concomitant]
     Active Substance: METHYLPREDNISOLONE
     Indication: HAEMOPHAGOCYTIC LYMPHOHISTIOCYTOSIS
     Dosage: 12 MG, UNK
     Route: 048
     Dates: start: 20180818, end: 20180912
  5. ILARIS [Suspect]
     Active Substance: CANAKINUMAB
     Indication: STILL^S DISEASE
     Dosage: 111 MG, UNK
     Route: 058
     Dates: start: 20180724
  6. ILARIS [Suspect]
     Active Substance: CANAKINUMAB
     Dosage: 96 MG
     Route: 058
     Dates: start: 20191203
  7. ILARIS [Suspect]
     Active Substance: CANAKINUMAB
     Dosage: 99 MG, UNK
     Route: 058
     Dates: start: 20200416
  8. ILARIS [Suspect]
     Active Substance: CANAKINUMAB
     Dosage: 99 MG, UNK
     Route: 058
     Dates: start: 20200611
  9. CICLOSPORIN [Concomitant]
     Active Substance: CYCLOSPORINE
     Indication: STILL^S DISEASE
     Dosage: 120 MG, UNK
     Route: 048
     Dates: start: 20180415, end: 20180817
  10. MEDROL [Concomitant]
     Active Substance: METHYLPREDNISOLONE
     Dosage: 2.5 MG, UNK
     Route: 048
     Dates: start: 20190319, end: 20190510
  11. ILARIS [Suspect]
     Active Substance: CANAKINUMAB
     Dosage: 108 MG, UNK
     Route: 058
     Dates: start: 20190123
  12. ILARIS [Suspect]
     Active Substance: CANAKINUMAB
     Dosage: 99 MG, UNK
     Route: 058
     Dates: start: 20190510
  13. ILARIS [Suspect]
     Active Substance: CANAKINUMAB
     Dosage: 90 MG, UNK
     Route: 058
     Dates: start: 20191008
  14. MEDROL [Concomitant]
     Active Substance: METHYLPREDNISOLONE
     Dosage: 2 MG, UNK
     Route: 048
     Dates: start: 20190511, end: 20190703
  15. MEDROL [Concomitant]
     Active Substance: METHYLPREDNISOLONE
     Dosage: 1 MG, UNK
     Route: 048
     Dates: start: 20190911
  16. ILARIS [Suspect]
     Active Substance: CANAKINUMAB
     Dosage: 111 MG, UNK
     Route: 058
     Dates: start: 20181009
  17. ILARIS [Suspect]
     Active Substance: CANAKINUMAB
     Dosage: 99 MG, UNK
     Route: 058
     Dates: start: 20190318
  18. ILARIS [Suspect]
     Active Substance: CANAKINUMAB
     Dosage: 90 MG, UNK
     Route: 058
     Dates: start: 20190910
  19. ILARIS [Suspect]
     Active Substance: CANAKINUMAB
     Dosage: 99 MG, UNK
     Route: 058
     Dates: start: 20200709
  20. MEDROL [Concomitant]
     Active Substance: METHYLPREDNISOLONE
     Dosage: 10 MG, UNK
     Route: 048
     Dates: start: 20180913, end: 20181009
  21. MEDROL [Concomitant]
     Active Substance: METHYLPREDNISOLONE
     Dosage: 7 MG, UNK
     Route: 048
     Dates: start: 20181106, end: 20181203
  22. ILARIS [Suspect]
     Active Substance: CANAKINUMAB
     Dosage: 111 MG, UNK
     Route: 058
     Dates: start: 20181105
  23. ILARIS [Suspect]
     Active Substance: CANAKINUMAB
     Dosage: 90 MG, UNK
     Route: 058
     Dates: start: 20191105
  24. MEDROL [Concomitant]
     Active Substance: METHYLPREDNISOLONE
     Dosage: 6 MG, UNK
     Route: 048
     Dates: start: 20181204, end: 20181228
  25. MEDROL [Concomitant]
     Active Substance: METHYLPREDNISOLONE
     Dosage: 4 MG, UNK
     Route: 048
     Dates: start: 20190124, end: 20190218
  26. MEDROL [Concomitant]
     Active Substance: METHYLPREDNISOLONE
     Dosage: 1.5 MG, UNK
     Route: 048
     Dates: start: 20190704, end: 20190910
  27. ILARIS [Suspect]
     Active Substance: CANAKINUMAB
     Dosage: 111 MG, UNK
     Route: 058
     Dates: start: 20180912
  28. ILARIS [Suspect]
     Active Substance: CANAKINUMAB
     Dosage: 108 MG, UNK
     Route: 058
     Dates: start: 20181203
  29. ILARIS [Suspect]
     Active Substance: CANAKINUMAB
     Dosage: 108 MG, UNK
     Route: 058
     Dates: start: 20181228
  30. ILARIS [Suspect]
     Active Substance: CANAKINUMAB
     Dosage: 105 MG, UNK
     Route: 058
     Dates: start: 20190218
  31. ILARIS [Suspect]
     Active Substance: CANAKINUMAB
     Dosage: 105 MG, UNK
     Route: 058
     Dates: start: 20190606
  32. ILARIS [Suspect]
     Active Substance: CANAKINUMAB
     Dosage: 90 MG, UNK
     Route: 058
     Dates: start: 20190813
  33. MEDROL [Concomitant]
     Active Substance: METHYLPREDNISOLONE
     Indication: STILL^S DISEASE
     Dosage: 16 MG, UNK
     Route: 048
     Dates: start: 20180704, end: 20180817
  34. MEDROL [Concomitant]
     Active Substance: METHYLPREDNISOLONE
     Dosage: 3 MG, UNK
     Route: 048
     Dates: start: 20190219, end: 20190318
  35. ILARIS [Suspect]
     Active Substance: CANAKINUMAB
     Dosage: 108 MG, UNK
     Route: 058
     Dates: start: 20180817
  36. ILARIS [Suspect]
     Active Substance: CANAKINUMAB
     Dosage: 99 MG, UNK
     Route: 058
     Dates: start: 20190415
  37. ILARIS [Suspect]
     Active Substance: CANAKINUMAB
     Dosage: 90 MG, UNK
     Route: 058
     Dates: start: 20190703
  38. ILARIS [Suspect]
     Active Substance: CANAKINUMAB
     Dosage: 96 MG, UNK
     Route: 058
     Dates: start: 20200123
  39. ILARIS [Suspect]
     Active Substance: CANAKINUMAB
     Dosage: 96 MG, UNK
     Route: 058
     Dates: start: 20200220
  40. ILARIS [Suspect]
     Active Substance: CANAKINUMAB
     Dosage: 99 MG, UNK
     Route: 058
     Dates: start: 20200514
  41. ILARIS [Suspect]
     Active Substance: CANAKINUMAB
     Dosage: 99 MG, UNK
     Route: 058
     Dates: start: 20200806
  42. CICLOSPORIN [Concomitant]
     Active Substance: CYCLOSPORINE
     Indication: HAEMOPHAGOCYTIC LYMPHOHISTIOCYTOSIS
     Dosage: 100 MG, UNK
     Route: 048
     Dates: start: 20180818, end: 20190514
  43. MEDROL [Concomitant]
     Active Substance: METHYLPREDNISOLONE
     Dosage: 8 MG, UNK
     Route: 048
     Dates: start: 20181010, end: 20181105
  44. MEDROL [Concomitant]
     Active Substance: METHYLPREDNISOLONE
     Dosage: 5 MG, UNK
     Route: 048
     Dates: start: 20181229, end: 20190123

REACTIONS (16)
  - Influenza [Recovered/Resolved]
  - Haemoptysis [Recovered/Resolved]
  - Oral discomfort [Recovered/Resolved]
  - Myalgia [Recovered/Resolved]
  - Nasopharyngitis [Recovered/Resolved]
  - Hyperthermia [Recovering/Resolving]
  - Constipation [Recovered/Resolved]
  - Upper respiratory tract inflammation [Recovered/Resolved]
  - Myalgia [Recovered/Resolved]
  - Abdominal pain [Recovered/Resolved]
  - Cough [Unknown]
  - Blood triglycerides increased [Unknown]
  - Weight decreased [Unknown]
  - Pneumonia mycoplasmal [Recovered/Resolved]
  - Upper respiratory tract inflammation [Recovered/Resolved]
  - Viral infection [Unknown]

NARRATIVE: CASE EVENT DATE: 20180731
